FAERS Safety Report 5394460-X (Version None)
Quarter: 2007Q3

REPORT INFORMATION
  Report Type: 
  Country: None (occurrence: None)
  Receive Date: 20070723
  Receipt Date: 20070530
  Transmission Date: 20080115
  Serious: No
  Sender: FDA-Public Use
  Company Number: US-AMGEN-US226872

PATIENT
  Sex: Male
  Weight: 95.8 kg

DRUGS (1)
  1. VECTIBIX [Suspect]
     Indication: COLORECTAL CANCER
     Route: 065
     Dates: start: 20070516, end: 20070530

REACTIONS (8)
  - DRY SKIN [None]
  - EYELID PTOSIS [None]
  - EYELIDS PRURITUS [None]
  - FEELING ABNORMAL [None]
  - HAEMORRHAGE [None]
  - OCULAR HYPERAEMIA [None]
  - RASH PUSTULAR [None]
  - VISUAL DISTURBANCE [None]
